FAERS Safety Report 17839482 (Version 2)
Quarter: 2020Q2

REPORT INFORMATION
  Report Type: Spontaneous
  Country: US (occurrence: US)
  Receive Date: 20200529
  Receipt Date: 20200623
  Transmission Date: 20200714
  Serious: Yes (Other)
  Sender: FDA-Public Use
  Company Number: US-GW PHARMA-202005USGW01905

PATIENT

DRUGS (2)
  1. BANZEL [Concomitant]
     Active Substance: RUFINAMIDE
     Indication: PRODUCT USED FOR UNKNOWN INDICATION
     Dosage: 600 MILLIGRAM(1 AND 1/2 MILLIGRAM TABLET DAILY), QD
     Route: 065
  2. EPIDIOLEX [Suspect]
     Active Substance: CANNABIDIOL
     Indication: EPILEPSY
     Dosage: 100 MILLIGRAM, BID
     Route: 048
     Dates: start: 202001

REACTIONS (4)
  - Seizure [Recovered/Resolved]
  - Product dose omission [Recovered/Resolved]
  - Dyspnoea [Unknown]
  - Moaning [Unknown]

NARRATIVE: CASE EVENT DATE: 2020
